FAERS Safety Report 17904187 (Version 1)
Quarter: 2020Q2

REPORT INFORMATION
  Report Type: Spontaneous
  Country: US (occurrence: US)
  Receive Date: 20200616
  Receipt Date: 20200616
  Transmission Date: 20200714
  Serious: Yes (Hospitalization)
  Sender: FDA-Public Use
  Company Number: None

PATIENT
  Age: 31 Year
  Sex: Male
  Weight: 80 kg

DRUGS (3)
  1. CISPLATIN. [Suspect]
     Active Substance: CISPLATIN
     Dates: end: 20200518
  2. TAXOL [Suspect]
     Active Substance: PACLITAXEL
     Dates: start: 20200514
  3. IFOSFAMIDE. [Suspect]
     Active Substance: IFOSFAMIDE
     Dates: start: 20200518

REACTIONS (2)
  - Febrile neutropenia [None]
  - Diarrhoea [None]

NARRATIVE: CASE EVENT DATE: 20200522
